FAERS Safety Report 25663429 (Version 1)
Quarter: 2025Q3

REPORT INFORMATION
  Report Type: Spontaneous
  Country: RU (occurrence: RU)
  Receive Date: 20250811
  Receipt Date: 20250811
  Transmission Date: 20251020
  Serious: Yes (Hospitalization, Other)
  Sender: VIIV
  Company Number: RU-VIIV HEALTHCARE-RU2025GSK101230

PATIENT
  Age: 47 Year
  Sex: Male

DRUGS (4)
  1. ABACAVIR [Suspect]
     Active Substance: ABACAVIR
     Indication: HIV infection
  2. LAMIVUDINE [Concomitant]
     Active Substance: LAMIVUDINE
     Indication: HIV infection
  3. LAMIVUDINE [Concomitant]
     Active Substance: LAMIVUDINE
  4. EFAVIRENZ [Concomitant]
     Active Substance: EFAVIRENZ
     Indication: HIV infection

REACTIONS (16)
  - Drug hypersensitivity [Recovering/Resolving]
  - HIV infection [Unknown]
  - Disease progression [Unknown]
  - Respiratory tract infection viral [Recovering/Resolving]
  - Mumps [Recovering/Resolving]
  - Gastroenteritis [Recovering/Resolving]
  - Sepsis [Recovering/Resolving]
  - Acute kidney injury [Recovering/Resolving]
  - Oliguria [Recovering/Resolving]
  - Megacolon [Recovering/Resolving]
  - Haemophagocytic lymphohistiocytosis [Recovering/Resolving]
  - Multiple organ dysfunction syndrome [Recovered/Resolved]
  - Systemic inflammatory response syndrome [Recovering/Resolving]
  - Nephropathy toxic [Recovering/Resolving]
  - Acute hepatic failure [Recovering/Resolving]
  - Disseminated intravascular coagulation [Recovering/Resolving]

NARRATIVE: CASE EVENT DATE: 20240501
